FAERS Safety Report 8021710-3 (Version None)
Quarter: 2012Q1

REPORT INFORMATION
  Report Type: 
  Country: None (occurrence: None)
  Receive Date: 20120104
  Receipt Date: 20111229
  Transmission Date: 20120608
  Serious: Yes (Hospitalization, Other)
  Sender: FDA-Public Use
  Company Number: PHFR2011GB06067

PATIENT
  Sex: Male

DRUGS (1)
  1. CLOZARIL [Suspect]
     Indication: SCHIZOPHRENIA
     Route: 048
     Dates: start: 20110905

REACTIONS (8)
  - PERICARDITIS [None]
  - HEART RATE IRREGULAR [None]
  - CHEST PAIN [None]
  - DIARRHOEA [None]
  - TACHYCARDIA [None]
  - HYPERTENSION [None]
  - GASTROENTERITIS VIRAL [None]
  - CHEST DISCOMFORT [None]
